FAERS Safety Report 7797233-3 (Version None)
Quarter: 2011Q4

REPORT INFORMATION
  Report Type: 
  Country: None (occurrence: None)
  Receive Date: 20111005
  Receipt Date: 20110928
  Transmission Date: 20120403
  Serious: Yes (Death, Hospitalization)
  Sender: FDA-Public Use
  Company Number: PHHY2011BR86111

PATIENT
  Sex: Female

DRUGS (2)
  1. DIOVAN [Suspect]
     Dosage: 2 DF, DAILY
     Route: 048
  2. DIOVAN [Suspect]
     Indication: HYPERTENSION
     Dosage: 1 DF, DAILY
     Route: 048

REACTIONS (7)
  - MULTI-ORGAN FAILURE [None]
  - BLOOD PRESSURE INADEQUATELY CONTROLLED [None]
  - INTESTINAL HAEMORRHAGE [None]
  - PNEUMONIA [None]
  - GENERAL PHYSICAL HEALTH DETERIORATION [None]
  - GASTRIC HAEMORRHAGE [None]
  - COMA [None]
